FAERS Safety Report 8276438-1 (Version None)
Quarter: 2012Q2

REPORT INFORMATION
  Report Type: 
  Country: None (occurrence: None)
  Receive Date: 20120412
  Receipt Date: 20120405
  Transmission Date: 20120825
  Serious: No
  Sender: FDA-Public Use
  Company Number: US-PFIZER INC-2012088166

PATIENT
  Sex: Female

DRUGS (1)
  1. TYGACIL [Suspect]

REACTIONS (2)
  - JAUNDICE [None]
  - DIARRHOEA [None]
